FAERS Safety Report 15406992 (Version 1)
Quarter: 2018Q3

REPORT INFORMATION
  Report Type: Spontaneous
  Country: US (occurrence: US)
  Receive Date: 20180919
  Receipt Date: 20180919
  Transmission Date: 20181010
  Serious: Yes (Life-Threatening, Hospitalization, Disabling)
  Sender: FDA-Public Use
  Company Number: None

PATIENT
  Age: 46 Year
  Sex: Male
  Weight: 109 kg

DRUGS (9)
  1. INVOKAMET [Suspect]
     Active Substance: CANAGLIFLOZIN\METFORMIN HYDROCHLORIDE
     Indication: TYPE 2 DIABETES MELLITUS
     Route: 048
  2. GABAPENTIN. [Concomitant]
     Active Substance: GABAPENTIN
  3. TRESIBA [Concomitant]
     Active Substance: INSULIN DEGLUDEC
  4. TIZANIDINE. [Concomitant]
     Active Substance: TIZANIDINE
  5. DOXEPIN [Concomitant]
     Active Substance: DOXEPIN
  6. MELOXICAM. [Concomitant]
     Active Substance: MELOXICAM
  7. NOVOLOG [Concomitant]
     Active Substance: INSULIN ASPART
  8. VIAGRA [Concomitant]
     Active Substance: SILDENAFIL CITRATE
  9. ATORVASTATIN [Concomitant]
     Active Substance: ATORVASTATIN

REACTIONS (5)
  - Sepsis [None]
  - Testicular pain [None]
  - Testicular swelling [None]
  - Necrotising fasciitis [None]
  - Emotional distress [None]

NARRATIVE: CASE EVENT DATE: 20180125
